FAERS Safety Report 17806105 (Version 1)
Quarter: 2020Q2

REPORT INFORMATION
  Report Type: Spontaneous
  Country: FR (occurrence: FR)
  Receive Date: 20200520
  Receipt Date: 20200520
  Transmission Date: 20200714
  Serious: Yes (Hospitalization)
  Sender: FDA-Public Use
  Company Number: FR-TEVA-2020-FR-1236472

PATIENT
  Age: 23 Year
  Sex: Male

DRUGS (4)
  1. DIAZEPAM. [Suspect]
     Active Substance: DIAZEPAM
     Route: 065
  2. CLONAZEPAM. [Suspect]
     Active Substance: CLONAZEPAM
     Route: 065
  3. LOXAPINE (SUCCINATE DE) [Suspect]
     Active Substance: LOXAPINE SUCCINATE
     Route: 065
  4. LYRICA [Suspect]
     Active Substance: PREGABALIN
     Route: 065

REACTIONS (7)
  - Drug abuse [Unknown]
  - Rhabdomyolysis [Recovering/Resolving]
  - Housebound [Not Recovered/Not Resolved]
  - Coma [Recovered/Resolved]
  - Hepatocellular injury [Recovering/Resolving]
  - Bladder dilatation [Recovered/Resolved]
  - Sinus tachycardia [Unknown]
